FAERS Safety Report 5704000-0 (Version None)
Quarter: 2008Q2

REPORT INFORMATION
  Report Type: 
  Country: None (occurrence: None)
  Receive Date: 20080414
  Receipt Date: 20080411
  Transmission Date: 20081010
  Serious: Yes (Other)
  Sender: FDA-Public Use
  Company Number: US-JNJFOC-20080402165

PATIENT
  Sex: Female
  Weight: 69.4 kg

DRUGS (2)
  1. REMICADE [Suspect]
     Indication: CROHN'S DISEASE
     Route: 042
  2. PERCOCET [Concomitant]
     Indication: PSORIASIS
     Dosage: SINCE 2004-DOSE ^10.3.25^

REACTIONS (1)
  - SYSTEMIC LUPUS ERYTHEMATOSUS [None]
